FAERS Safety Report 5134001-5 (Version None)
Quarter: 2006Q4

REPORT INFORMATION
  Report Type: 
  Country: None (occurrence: None)
  Receive Date: 20061019
  Receipt Date: 20060928
  Transmission Date: 20070319
  Serious: Yes (Other)
  Sender: FDA-Public Use
  Company Number: 2005157234

PATIENT
  Age: 54 Year
  Sex: Male
  Weight: 90 kg

DRUGS (7)
  1. LYRICA [Suspect]
     Indication: COMPLEX REGIONAL PAIN SYNDROME
     Dosage: 300 MG (150 MG, 2 IN 1 D), ORAL
     Route: 048
     Dates: start: 20050301, end: 20050616
  2. NEURONTIN [Concomitant]
  3. PLAVIX [Concomitant]
  4. CRESTOR [Concomitant]
  5. SOTALOL HCL [Concomitant]
  6. TRAMADOL HCL [Concomitant]
  7. LIPITOR [Concomitant]

REACTIONS (7)
  - ANGER [None]
  - DEPERSONALISATION [None]
  - DISINHIBITION [None]
  - IMPAIRED WORK ABILITY [None]
  - LOSS OF EMPLOYMENT [None]
  - MANIA [None]
  - PSYCHOTIC DISORDER [None]
